FAERS Safety Report 6508225-6 (Version None)
Quarter: 2009Q4

REPORT INFORMATION
  Report Type: 
  Country: None (occurrence: None)
  Receive Date: 20091221
  Receipt Date: 20081215
  Transmission Date: 20100525
  Serious: No
  Sender: FDA-Public Use
  Company Number: US-ASTRAZENECA-2008UW27801

PATIENT
  Age: 52 Year
  Sex: Female
  Weight: 68 kg

DRUGS (7)
  1. CRESTOR [Suspect]
     Indication: BLOOD CHOLESTEROL INCREASED
     Route: 048
     Dates: start: 20081201
  2. SYNTHROID [Concomitant]
  3. TYLENOL (CAPLET) [Concomitant]
  4. SUDAFED 12 HOUR [Concomitant]
  5. HYDROCHLOROTHIAZIDE [Concomitant]
  6. SPIRONOLACTONE [Concomitant]
  7. DUCOSATE [Concomitant]

REACTIONS (4)
  - HEADACHE [None]
  - HUNGER [None]
  - MENSTRUATION IRREGULAR [None]
  - NAUSEA [None]
